FAERS Safety Report 17914910 (Version 2)
Quarter: 2020Q3

REPORT INFORMATION
  Report Type: Spontaneous
  Country: JP (occurrence: JP)
  Receive Date: 20200618
  Receipt Date: 20200907
  Transmission Date: 20201103
  Serious: Yes (Hospitalization, Other)
  Sender: FDA-Public Use
  Company Number: JP-TAKEDA-2020TUS026929

PATIENT
  Age: 85 Year
  Sex: Female

DRUGS (1)
  1. ICLUSIG [Suspect]
     Active Substance: PONATINIB
     Indication: CHRONIC MYELOID LEUKAEMIA TRANSFORMATION
     Dosage: 15 MILLIGRAM
     Route: 048
     Dates: end: 20200609

REACTIONS (2)
  - Posterior reversible encephalopathy syndrome [Unknown]
  - Altered state of consciousness [Unknown]
